FAERS Safety Report 18520122 (Version 2)
Quarter: 2020Q4

REPORT INFORMATION
  Report Type: Spontaneous
  Country: FI (occurrence: FI)
  Receive Date: 20201119
  Receipt Date: 20201217
  Transmission Date: 20210114
  Serious: Yes (Other)
  Sender: FDA-Public Use
  Company Number: FI-ABBVIE-20P-055-3656447-00

PATIENT
  Age: 79 Year
  Sex: Male

DRUGS (1)
  1. ENANTON DEPOT DUAL [Suspect]
     Active Substance: LEUPROLIDE ACETATE
     Indication: PROSTATE CANCER
     Dosage: 11.25 MILLIGRAM, Q3MONTHS
     Route: 058

REACTIONS (1)
  - Leukopenia [Unknown]

NARRATIVE: CASE EVENT DATE: 20200713
